FAERS Safety Report 5273430-6 (Version None)
Quarter: 2007Q1

REPORT INFORMATION
  Report Type: 
  Country: None (occurrence: None)
  Receive Date: 20061219
  Receipt Date: 20060922
  Transmission Date: 20070707
  Serious: Yes (Hospitalization)
  Sender: FDA-Public Use
  Company Number: US-JNJFOC-20060703211

PATIENT
  Age: 27 Year
  Sex: Female
  Weight: 82.9 kg

DRUGS (3)
  1. ORTHO EVRA [Suspect]
     Indication: CONTRACEPTION
     Dosage: TRANSDERMAL
     Route: 062
     Dates: start: 20050301, end: 20050715
  2. ALBUTEROL [Concomitant]
  3. PERCOCET [Concomitant]

REACTIONS (1)
  - PULMONARY EMBOLISM [None]
